FAERS Safety Report 17205908 (Version 1)
Quarter: 2019Q4

REPORT INFORMATION
  Report Type: Spontaneous
  Country: US (occurrence: US)
  Receive Date: 20191227
  Receipt Date: 20191227
  Transmission Date: 20200122
  Serious: Yes (Hospitalization)
  Sender: FDA-Public Use
  Company Number: US-GLENMARK PHARMACEUTICALS-2019GMK045064

PATIENT
  Age: 26 Year
  Sex: Male

DRUGS (18)
  1. HYDROCORTISONE BUTYRATE. [Suspect]
     Active Substance: HYDROCORTISONE BUTYRATE
     Indication: ENCEPHALOMALACIA
  2. HYDROCORTISONE BUTYRATE. [Suspect]
     Active Substance: HYDROCORTISONE BUTYRATE
     Indication: METASTASES TO MENINGES
     Dosage: 3 DF (3 DOSE OF CHEMOTHERAPY)
     Route: 037
  3. BLINATUMOMAB [Suspect]
     Active Substance: BLINATUMOMAB
     Indication: ACUTE LYMPHOCYTIC LEUKAEMIA RECURRENT
  4. PROPOFOL. [Concomitant]
     Active Substance: PROPOFOL
     Indication: SEDATION
     Dosage: UNK (ON DAYS 4, 8, AND 11)
     Route: 065
  5. CYTARABINE. [Suspect]
     Active Substance: CYTARABINE
     Indication: ENCEPHALOMALACIA
  6. METHOTREXATE. [Suspect]
     Active Substance: METHOTREXATE
     Indication: ACUTE LYMPHOCYTIC LEUKAEMIA RECURRENT
  7. HYDROCORTISONE BUTYRATE. [Suspect]
     Active Substance: HYDROCORTISONE BUTYRATE
     Indication: CEREBRAL ATROPHY
  8. METHOTREXATE. [Suspect]
     Active Substance: METHOTREXATE
     Indication: ENCEPHALOMALACIA
  9. HYDROCORTISONE BUTYRATE. [Suspect]
     Active Substance: HYDROCORTISONE BUTYRATE
     Indication: ACUTE LYMPHOCYTIC LEUKAEMIA RECURRENT
  10. METHOTREXATE. [Suspect]
     Active Substance: METHOTREXATE
     Indication: METASTASES TO MENINGES
     Dosage: 3 DF (3 DOSE OF CHEMOTHERAPY)
     Route: 037
  11. BLINATUMOMAB [Suspect]
     Active Substance: BLINATUMOMAB
     Indication: METASTASES TO MENINGES
     Dosage: 9 MCG, QD
     Route: 065
  12. MIDAZOLAM [Concomitant]
     Active Substance: MIDAZOLAM HYDROCHLORIDE
     Indication: SEDATION
     Dosage: UNK (ON DAYS 4, 8, AND 11)
     Route: 065
  13. CYTARABINE. [Suspect]
     Active Substance: CYTARABINE
     Indication: CEREBRAL ATROPHY
  14. METHOTREXATE. [Suspect]
     Active Substance: METHOTREXATE
     Indication: CEREBRAL ATROPHY
  15. BLINATUMOMAB [Suspect]
     Active Substance: BLINATUMOMAB
     Indication: CEREBRAL ATROPHY
     Dosage: 28 MCG, QD (ON DAY 8)
     Route: 065
  16. CYTARABINE. [Suspect]
     Active Substance: CYTARABINE
     Indication: ACUTE LYMPHOCYTIC LEUKAEMIA RECURRENT
  17. CYTARABINE. [Suspect]
     Active Substance: CYTARABINE
     Indication: METASTASES TO MENINGES
     Dosage: 3 DF (3 DOSE OF CHEMOTHERAPY)
     Route: 037
  18. BLINATUMOMAB [Suspect]
     Active Substance: BLINATUMOMAB
     Indication: ENCEPHALOMALACIA

REACTIONS (9)
  - Hypoxia [Recovering/Resolving]
  - Urinary incontinence [Recovering/Resolving]
  - Disorientation [Recovering/Resolving]
  - Mental status changes [Recovering/Resolving]
  - Muscular weakness [Recovering/Resolving]
  - Confusional state [Recovering/Resolving]
  - Anal incontinence [Unknown]
  - Speech disorder [Recovering/Resolving]
  - Neurotoxicity [Recovering/Resolving]
